FAERS Safety Report 4299821-8 (Version None)
Quarter: 2004Q1

REPORT INFORMATION
  Report Type: 
  Country: None (occurrence: None)
  Receive Date: 20040219
  Receipt Date: 20040129
  Transmission Date: 20041129
  Serious: Yes (Hospitalization)
  Sender: FDA-Public Use
  Company Number: WAES 0402USA00427

PATIENT
  Age: 63 Year
  Sex: Female

DRUGS (4)
  1. MODURETIC 5-50 [Suspect]
     Route: 048
  2. LOPRIL [Suspect]
     Route: 048
  3. DIAMICRON [Concomitant]
  4. GLUCOPHAGE [Concomitant]

REACTIONS (2)
  - MYOCARDIAL INFARCTION [None]
  - PANCREATITIS ACUTE [None]
